FAERS Safety Report 25008932 (Version 1)
Quarter: 2025Q1

REPORT INFORMATION
  Report Type: Spontaneous
  Country: TR (occurrence: TR)
  Receive Date: 20250225
  Receipt Date: 20250225
  Transmission Date: 20250409
  Serious: Yes (Life-Threatening, Hospitalization)
  Sender: MYLAN
  Company Number: TR-MYLANLABS-2025M1016447

PATIENT
  Age: 14 Year
  Sex: Female

DRUGS (4)
  1. AMLODIPINE [Suspect]
     Active Substance: AMLODIPINE BESYLATE
     Indication: Product used for unknown indication
     Dosage: 300 MILLIGRAM, QD (INGESTED 30 AMLODIPINE TABLETS)
  2. AMLODIPINE [Suspect]
     Active Substance: AMLODIPINE BESYLATE
     Dosage: 300 MILLIGRAM, QD (INGESTED 30 AMLODIPINE TABLETS)
     Route: 048
  3. AMLODIPINE [Suspect]
     Active Substance: AMLODIPINE BESYLATE
     Dosage: 300 MILLIGRAM, QD (INGESTED 30 AMLODIPINE TABLETS)
     Route: 048
  4. AMLODIPINE [Suspect]
     Active Substance: AMLODIPINE BESYLATE
     Dosage: 300 MILLIGRAM, QD (INGESTED 30 AMLODIPINE TABLETS)

REACTIONS (5)
  - Suicide attempt [Recovered/Resolved]
  - Toxicity to various agents [Recovered/Resolved]
  - Hypotension [Recovered/Resolved]
  - Anuria [Recovered/Resolved]
  - Somnolence [Recovered/Resolved]
